FAERS Safety Report 5256543-4 (Version None)
Quarter: 2007Q1

REPORT INFORMATION
  Report Type: 
  Country: None (occurrence: None)
  Receive Date: 20070301
  Receipt Date: 20070221
  Transmission Date: 20070707
  Serious: Yes (Other)
  Sender: FDA-Public Use
  Company Number: 2007EN00070

PATIENT

DRUGS (1)
  1. OPANA ER [Suspect]

REACTIONS (4)
  - FEELING ABNORMAL [None]
  - FEELING JITTERY [None]
  - MOOD ALTERED [None]
  - SUICIDAL IDEATION [None]
